FAERS Safety Report 5406172-4 (Version None)
Quarter: 2007Q3

REPORT INFORMATION
  Report Type: 
  Country: None (occurrence: None)
  Receive Date: 20070802
  Receipt Date: 20070802
  Transmission Date: 20080115
  Serious: Yes (Hospitalization, Disabling)
  Sender: FDA-Public Use
  Company Number: None

PATIENT
  Sex: Male
  Weight: 118 kg

DRUGS (10)
  1. NAFCILLIN SODIUM [Suspect]
     Indication: BACTERAEMIA
     Dosage: 2G/100 ML EVERY 4 HOURS IV
     Route: 042
     Dates: start: 20070515, end: 20070521
  2. HYDROMORPHONE HCL [Concomitant]
  3. VANCOMYCIN [Concomitant]
  4. GENTAMICIN [Concomitant]
  5. NPH ILETIN II [Concomitant]
  6. METFORMIN HCL [Concomitant]
  7. LISINOPRIL [Concomitant]
  8. METOLAZONE [Concomitant]
  9. GABAPENTIN [Concomitant]
  10. FUROSEMIDE [Concomitant]

REACTIONS (1)
  - RENAL FAILURE ACUTE [None]
